FAERS Safety Report 8153259-1 (Version None)
Quarter: 2012Q1

REPORT INFORMATION
  Report Type: 
  Country: None (occurrence: None)
  Receive Date: 20120221
  Receipt Date: 20120214
  Transmission Date: 20120608
  Serious: Yes (Death, Hospitalization)
  Sender: FDA-Public Use
  Company Number: US-JNJFOC-20070802131

PATIENT
  Sex: Female
  Weight: 60.8 kg

DRUGS (5)
  1. ANTIPSYCHOTIC MEDICATION [Concomitant]
     Indication: PSYCHOTHERAPY
     Route: 065
  2. EXTRA STRENGTH TYLENOL PM VANILLA [Suspect]
     Indication: INTENTIONAL OVERDOSE
     Dosage: 7-8 BOTTLES
     Route: 048
     Dates: start: 20070507
  3. BENADRYL [Suspect]
     Route: 048
  4. ANTIPSYCHOTIC MEDICATION [Concomitant]
     Indication: BIPOLAR DISORDER
     Route: 065
  5. BENADRYL [Suspect]
     Indication: INTENTIONAL OVERDOSE
     Dosage: 2 BOTTLES
     Route: 048
     Dates: start: 20070507

REACTIONS (3)
  - DRUG ADMINISTRATION ERROR [None]
  - HEPATIC FAILURE [None]
  - MULTIPLE DRUG OVERDOSE INTENTIONAL [None]
